FAERS Safety Report 17663659 (Version 1)
Quarter: 2020Q2

REPORT INFORMATION
  Report Type: Other
  Country: TW (occurrence: TW)
  Receive Date: 20200414
  Receipt Date: 20200414
  Transmission Date: 20200713
  Serious: Yes (Hospitalization, Other)
  Sender: FDA-Public Use
  Company Number: TW-HEALTHCARE PHARMACEUTICALS LTD.-2082806

PATIENT
  Age: 30 Year
  Sex: Female

DRUGS (4)
  1. VINCRISTINE SULFATE. [Suspect]
     Active Substance: VINCRISTINE SULFATE
     Route: 065
  2. PREDNISONE. [Suspect]
     Active Substance: PREDNISONE
     Route: 065
  3. CYCLOPHOSPHAMIDE. [Suspect]
     Active Substance: CYCLOPHOSPHAMIDE
     Route: 065
  4. DOXORUBICIN HYDROCHLORIDE. [Suspect]
     Active Substance: DOXORUBICIN HYDROCHLORIDE
     Indication: ANGIOCENTRIC LYMPHOMA
     Route: 065

REACTIONS (1)
  - Encephalopathy [Recovering/Resolving]
